FAERS Safety Report 10265658 (Version 1)
Quarter: 2014Q2

REPORT INFORMATION
  Report Type: Spontaneous
  Country: US (occurrence: US)
  Receive Date: 20140627
  Receipt Date: 20140627
  Transmission Date: 20141212
  Serious: Yes (Hospitalization)
  Sender: FDA-Public Use
  Company Number: US-B.I. PHARMACEUTICALS,INC./RIDGEFIELD-2014-BI-28866BP

PATIENT
  Age: 83 Year
  Sex: Male

DRUGS (4)
  1. PRADAXA [Suspect]
     Indication: CEREBROVASCULAR ACCIDENT PROPHYLAXIS
     Dosage: 300 MG
     Route: 048
     Dates: end: 20140303
  2. PRADAXA [Suspect]
     Indication: ATRIAL FIBRILLATION
  3. DEPRESSION MEDICATION [Concomitant]
     Indication: DEPRESSION
     Route: 065
  4. DEPRESSION MEDICATION [Concomitant]
     Route: 065

REACTIONS (2)
  - Haemorrhage urinary tract [Not Recovered/Not Resolved]
  - Anaemia [Not Recovered/Not Resolved]
